FAERS Safety Report 4834853-X (Version None)
Quarter: 2005Q4

REPORT INFORMATION
  Report Type: 
  Country: None (occurrence: None)
  Receive Date: 20051115
  Receipt Date: 20051031
  Transmission Date: 20060501
  Serious: Yes (Hospitalization, Other)
  Sender: FDA-Public Use
  Company Number: A-US2005-10889

PATIENT
  Age: 46 Year
  Sex: Female

DRUGS (10)
  1. TRACLEER [Suspect]
     Indication: PULMONARY HYPERTENSION
     Dosage: 125 MG, BID, ORAL; 62.5 MG, BID, ORAL
     Route: 048
     Dates: start: 20050401, end: 20050826
  2. TRACLEER [Suspect]
     Indication: PULMONARY HYPERTENSION
     Dosage: 125 MG, BID, ORAL; 62.5 MG, BID, ORAL
     Route: 048
     Dates: start: 20050301
  3. ALLOPURINOL [Suspect]
  4. CEPHALEXIN [Suspect]
  5. MONOPRIL [Concomitant]
  6. PREDNISONE [Concomitant]
  7. SYNTHROID [Concomitant]
  8. MULTIVITAMINS (RIBOFLAVIN, THIAMINE HYDROCHLORIDE, RETINOL, PANTHENOL, [Concomitant]
  9. FERROUS SULFATE TAB [Concomitant]
  10. LASIX [Concomitant]

REACTIONS (30)
  - ABDOMINAL DISTENSION [None]
  - ACUTE PRERENAL FAILURE [None]
  - APHAGIA [None]
  - ARTHRALGIA [None]
  - ASCITES [None]
  - BILIARY DILATATION [None]
  - BLOOD IRON DECREASED [None]
  - CANDIDIASIS [None]
  - CHOLECYSTITIS [None]
  - CHOLELITHIASIS [None]
  - CONDITION AGGRAVATED [None]
  - COOMBS TEST POSITIVE [None]
  - DIARRHOEA [None]
  - FATIGUE [None]
  - GOUTY ARTHRITIS [None]
  - HEPATIC FUNCTION ABNORMAL [None]
  - HEPATOMEGALY [None]
  - LUNG INFILTRATION [None]
  - MENORRHAGIA [None]
  - NEPHROLITHIASIS [None]
  - OEDEMA [None]
  - OEDEMA PERIPHERAL [None]
  - OLIGODIPSIA [None]
  - PANCYTOPENIA [None]
  - RASH [None]
  - RENAL VESSEL DISORDER [None]
  - SPLENOMEGALY [None]
  - SYSTEMIC LUPUS ERYTHEMATOSUS [None]
  - URINARY TRACT INFECTION [None]
  - WHITE BLOOD CELL COUNT DECREASED [None]
